FAERS Safety Report 7810122-0 (Version None)
Quarter: 2011Q4

REPORT INFORMATION
  Report Type: 
  Country: None (occurrence: None)
  Receive Date: 20111012
  Receipt Date: 20111008
  Transmission Date: 20120403
  Serious: Yes (Hospitalization)
  Sender: FDA-Public Use
  Company Number: US-BRISTOL-MYERS SQUIBB COMPANY-16016412

PATIENT
  Age: 49 Year
  Sex: Male
  Weight: 118 kg

DRUGS (1)
  1. IPILIMUMAB [Suspect]
     Indication: MALIGNANT MELANOMA
     Dosage: CYCLE 21DAYS 10MG/KG OVER 90MIN ON DAY1  C2 ADMINISTERED ON 23AUG11 NO OF COURSE: 3.
     Route: 042
     Dates: start: 20110802, end: 20110802

REACTIONS (1)
  - FACIAL NERVE DISORDER [None]
